FAERS Safety Report 7081681-3 (Version None)
Quarter: 2010Q4

REPORT INFORMATION
  Report Type: 
  Country: None (occurrence: None)
  Receive Date: 20101103
  Receipt Date: 20101028
  Transmission Date: 20110411
  Serious: Yes (Life-Threatening, Hospitalization)
  Sender: FDA-Public Use
  Company Number: FR-ABBOTT-10P-056-0681995-00

PATIENT
  Sex: Male

DRUGS (3)
  1. KALETRA [Suspect]
     Indication: HIV INFECTION
     Dosage: 200MG/50MG, 2 IN 1 DAY
     Route: 048
     Dates: start: 20070601
  2. DIDANOSINE [Concomitant]
     Indication: HIV INFECTION
     Dates: start: 20000101
  3. EFAVIRENZ [Concomitant]
     Indication: PRODUCT USED FOR UNKNOWN INDICATION
     Dates: start: 20000101

REACTIONS (3)
  - MEASLES [None]
  - PULMONARY EMBOLISM [None]
  - SUPERINFECTION [None]
